FAERS Safety Report 18863264 (Version 5)
Quarter: 2021Q4

REPORT INFORMATION
  Report Type: Report from Study
  Country: JP (occurrence: JP)
  Receive Date: 20210208
  Receipt Date: 20211124
  Transmission Date: 20220303
  Serious: Yes (Death, Other)
  Sender: FDA-Public Use
  Company Number: JP-ALNYLAM PHARMACEUTICALS, INC.-ALN-2021-000227

PATIENT

DRUGS (11)
  1. ONPATTRO [Suspect]
     Active Substance: PATISIRAN SODIUM
     Indication: Hereditary neuropathic amyloidosis
     Dosage: 16 MILLIGRAM
     Route: 041
     Dates: start: 20210119, end: 20210119
  2. FAMOTIDINE [Concomitant]
     Active Substance: FAMOTIDINE
     Indication: Prophylaxis
     Dosage: 20 MILLIGRAM, SINGLE
     Route: 042
     Dates: start: 20210119, end: 20210119
  3. POLARAMINE [Concomitant]
     Active Substance: DEXCHLORPHENIRAMINE MALEATE
     Indication: Prophylaxis
     Dosage: 5 MILLIGRAM, SINGLE
     Route: 065
     Dates: start: 20210119, end: 20210119
  4. DECADRON [Concomitant]
     Active Substance: DEXAMETHASONE
     Indication: Prophylaxis
     Dosage: 6.6 MILLIGRAM, SINGLE
     Route: 065
     Dates: start: 20210119, end: 20210119
  5. DECADRON [Concomitant]
     Active Substance: DEXAMETHASONE
     Indication: Prophylaxis
     Dosage: 3.3 UNK, SINGLE
     Route: 065
     Dates: start: 20210119, end: 20210119
  6. ACETAMINOPHEN [Concomitant]
     Active Substance: ACETAMINOPHEN
     Indication: Prophylaxis
     Dosage: 500 MILLIGRAM, SINGLE
     Route: 048
     Dates: start: 20210119, end: 20210119
  7. METHYLCOBALAMIN [Concomitant]
     Active Substance: METHYLCOBALAMIN
     Indication: Hereditary neuropathic amyloidosis
     Dosage: 0.5 MILLIGRAM, TID
     Route: 048
     Dates: end: 20210201
  8. MAGNESIUM OXIDE [Concomitant]
     Active Substance: MAGNESIUM OXIDE
     Indication: Hereditary neuropathic amyloidosis
     Dosage: 250 MILLIGRAM, TID
     Route: 065
     Dates: end: 20210201
  9. MIROGABALIN BESYLATE [Concomitant]
     Active Substance: MIROGABALIN BESYLATE
     Indication: Hereditary neuropathic amyloidosis
     Dosage: 10 MILLIGRAM, BID
     Route: 048
     Dates: end: 20210201
  10. VIMPAT [Concomitant]
     Active Substance: LACOSAMIDE
     Indication: Epilepsy
     Dosage: 100 MILLIGRAM, BID
     Route: 048
     Dates: end: 20210201
  11. MIRABEGRON [Concomitant]
     Active Substance: MIRABEGRON
     Indication: Hereditary neuropathic amyloidosis
     Dosage: 50 MILLIGRAM, QD
     Route: 048
     Dates: end: 20210201

REACTIONS (2)
  - Sudden cardiac death [Fatal]
  - Feeling hot [Recovered/Resolved]

NARRATIVE: CASE EVENT DATE: 20210119
